FAERS Safety Report 19791220 (Version 1)
Quarter: 2021Q3

REPORT INFORMATION
  Report Type: Other
  Country: GB (occurrence: GB)
  Receive Date: 20210906
  Receipt Date: 20210906
  Transmission Date: 20211014
  Serious: Yes (Disabling, Other)
  Sender: FDA-Public Use
  Company Number: GB-IPCA LABORATORIES LIMITED-IPC-2021-GB-001602

PATIENT

DRUGS (8)
  1. FUROSEMIDE TABLET [Suspect]
     Active Substance: FUROSEMIDE
     Indication: BUNDLE BRANCH BLOCK RIGHT
     Dosage: 40 MILLIGRAM
     Route: 048
     Dates: start: 20210719, end: 20210724
  2. AMLODIPINE [Concomitant]
     Active Substance: AMLODIPINE BESYLATE
     Dosage: 1 TABLET ONCE A DAY
     Route: 065
     Dates: start: 20210601, end: 20210701
  3. INDAPAMIDE. [Concomitant]
     Active Substance: INDAPAMIDE
     Dosage: 1 TABLET ONCE A DAY
     Route: 065
     Dates: start: 20210813
  4. AMLODIPINE [Concomitant]
     Active Substance: AMLODIPINE BESYLATE
     Dosage: 1 TABLET ONCE A DAY
     Route: 065
     Dates: start: 20210701
  5. INDAPAMIDE. [Concomitant]
     Active Substance: INDAPAMIDE
     Indication: PRODUCT USED FOR UNKNOWN INDICATION
     Dosage: 1 TABLET ONCE A DAY
     Route: 065
     Dates: start: 20210719
  6. AMLODIPINE [Concomitant]
     Active Substance: AMLODIPINE BESYLATE
     Indication: PRODUCT USED FOR UNKNOWN INDICATION
     Dosage: 1 TABLET ONCE A DAY
     Route: 065
     Dates: start: 20210701, end: 20210727
  7. LOSARTAN. [Concomitant]
     Active Substance: LOSARTAN
     Indication: PRODUCT USED FOR UNKNOWN INDICATION
     Dosage: 1 TABLET ONCE A DAY
     Route: 065
     Dates: start: 20210831
  8. AMLODIPINE [Concomitant]
     Active Substance: AMLODIPINE BESYLATE
     Dosage: 1 TABLET ONCE A DAY
     Route: 065
     Dates: start: 20210601

REACTIONS (1)
  - Blister [Recovered/Resolved]

NARRATIVE: CASE EVENT DATE: 20210819
